FAERS Safety Report 9337032 (Version 1)
Quarter: 2013Q2

REPORT INFORMATION
  Report Type: Spontaneous
  Country: GB (occurrence: GB)
  Receive Date: 20130607
  Receipt Date: 20130607
  Transmission Date: 20140414
  Serious: Yes (Hospitalization)
  Sender: FDA-Public Use
  Company Number: GB-BAYER-2013-069717

PATIENT
  Age: 73 Year
  Sex: 0

DRUGS (2)
  1. ACETYLSALICYLIC ACID [Suspect]
     Indication: PULMONARY EMBOLISM
     Dosage: 150 MG, QD
  2. DALTEPARIN [Interacting]
     Indication: PULMONARY EMBOLISM
     Dosage: 15,000 UNITS

REACTIONS (3)
  - Spinal subdural haematoma [Recovering/Resolving]
  - Cauda equina syndrome [Recovering/Resolving]
  - Labelled drug-drug interaction medication error [None]
